FAERS Safety Report 12838926 (Version 5)
Quarter: 2019Q2

REPORT INFORMATION
  Report Type: Spontaneous
  Country: US (occurrence: US)
  Receive Date: 20161012
  Receipt Date: 20190625
  Transmission Date: 20190711
  Serious: No
  Sender: FDA-Public Use
  Company Number: US-PFIZER INC-2016467217

PATIENT
  Age: 52 Year
  Sex: Male
  Weight: 82 kg

DRUGS (4)
  1. LYRICA [Suspect]
     Active Substance: PREGABALIN
     Indication: PARTIAL SEIZURES
     Dosage: 150 MG, 2X/DAY
     Route: 048
     Dates: start: 20161021
  2. LYRICA [Suspect]
     Active Substance: PREGABALIN
     Indication: SEIZURE
     Dosage: 150 MG, 2X/DAY
     Route: 048
     Dates: start: 20160719, end: 2016
  3. CARBATROL [Concomitant]
     Active Substance: CARBAMAZEPINE
     Dosage: 200 MG, 2X/DAY (12 HR)
  4. TEGRETOL [Concomitant]
     Active Substance: CARBAMAZEPINE
     Dosage: 600 MG, 2X/DAY

REACTIONS (1)
  - Therapeutic product effect incomplete [Unknown]
